FAERS Safety Report 5506426-7 (Version None)
Quarter: 2007Q4

REPORT INFORMATION
  Report Type: 
  Country: None (occurrence: None)
  Receive Date: 20071105
  Receipt Date: 20071105
  Transmission Date: 20080405
  Serious: Yes (Hospitalization)
  Sender: FDA-Public Use
  Company Number: A0691382A

PATIENT
  Age: 62 Year
  Sex: Male

DRUGS (1)
  1. BC HEADACHE POWDER [Suspect]
     Indication: HEADACHE

REACTIONS (7)
  - DRUG INEFFECTIVE [None]
  - HAEMORRHAGE INTRACRANIAL [None]
  - HEADACHE [None]
  - INTRACRANIAL ANEURYSM [None]
  - LOSS OF CONSCIOUSNESS [None]
  - PAIN [None]
  - SPINAL DISORDER [None]
